FAERS Safety Report 8445634-2 (Version None)
Quarter: 2012Q2

REPORT INFORMATION
  Report Type: 
  Country: None (occurrence: None)
  Receive Date: 20120618
  Receipt Date: 20120607
  Transmission Date: 20120825
  Serious: Yes (Hospitalization, Other)
  Sender: FDA-Public Use
  Company Number: US-BRISTOL-MYERS SQUIBB COMPANY-14316772

PATIENT
  Age: 64 Year
  Sex: Female
  Weight: 91 kg

DRUGS (1)
  1. COUMADIN [Suspect]
     Indication: ATRIAL FIBRILLATION
     Dosage: 9MG REDUCED TO 7MG,THEN TO 5MG FOR A WK,INCREASED TO 10MG.GENERIC(JANTOVEN)AT HOME,BRAND AT HOSPITAL
     Route: 048

REACTIONS (6)
  - PNEUMONIA [None]
  - WEIGHT INCREASED [None]
  - HAEMORRHAGE [None]
  - INTERNATIONAL NORMALISED RATIO DECREASED [None]
  - ANAEMIA [None]
  - INTERNATIONAL NORMALISED RATIO FLUCTUATION [None]
